FAERS Safety Report 13066115 (Version 7)
Quarter: 2017Q3

REPORT INFORMATION
  Report Type: Report from Study
  Country: US (occurrence: US)
  Receive Date: 20161227
  Receipt Date: 20170925
  Transmission Date: 20171127
  Serious: Yes (Hospitalization)
  Sender: FDA-Public Use
  Company Number: US-CELGENEUS-USA-2016107532

PATIENT
  Age: 43 Year
  Sex: Female

DRUGS (52)
  1. MORPHINE [Concomitant]
     Active Substance: MORPHINE
     Indication: PAIN
     Route: 065
     Dates: start: 20161018, end: 20161025
  2. PARACETAMOL [Concomitant]
     Active Substance: ACETAMINOPHEN
     Route: 065
     Dates: start: 20161129, end: 20161201
  3. ABRAXANE [Suspect]
     Active Substance: PACLITAXEL
     Dosage: 100MG/M2
     Route: 041
     Dates: start: 20161010
  4. PANTOPRAZOLE SODIUM. [Concomitant]
     Active Substance: PANTOPRAZOLE SODIUM
     Indication: GASTRIC ULCER
     Route: 065
     Dates: start: 20161019, end: 20161025
  5. OXYCODONE HYDROCHLORIDE. [Concomitant]
     Active Substance: OXYCODONE HYDROCHLORIDE
     Indication: PAIN
     Route: 065
     Dates: start: 20161020, end: 20161025
  6. PARACETAMOL [Concomitant]
     Active Substance: ACETAMINOPHEN
     Indication: PAIN
     Route: 065
     Dates: start: 20161019, end: 20161019
  7. PARACETAMOL [Concomitant]
     Active Substance: ACETAMINOPHEN
     Route: 065
     Dates: start: 20161020, end: 20161020
  8. LEVOFLOXACIN. [Concomitant]
     Active Substance: LEVOFLOXACIN
     Route: 065
     Dates: start: 20161022, end: 20161023
  9. OXYCODONE HYDROCHLORIDE, PARACETAMOL [Concomitant]
     Indication: PAIN
     Route: 065
     Dates: start: 20161018, end: 20161020
  10. CODEINE PHOSPHATE, GUAIFENESIN [Concomitant]
     Active Substance: CODEINE PHOSPHATE\GUAIFENESIN
     Route: 065
     Dates: start: 20161019, end: 20161019
  11. CODEINE PHOSPHATE, GUAIFENESIN [Concomitant]
     Active Substance: CODEINE PHOSPHATE\GUAIFENESIN
     Route: 065
     Dates: start: 20161022, end: 20161025
  12. NAPROXEN. [Concomitant]
     Active Substance: NAPROXEN
     Indication: PAIN
     Route: 065
     Dates: start: 20161024, end: 20161025
  13. WHEY PROTEIN [Concomitant]
     Active Substance: WHEY
     Indication: ENTERAL NUTRITION
     Route: 065
     Dates: start: 20161022, end: 20161025
  14. NAPROXEN SODIUM. [Concomitant]
     Active Substance: NAPROXEN SODIUM
     Indication: BACK PAIN
     Route: 065
     Dates: start: 20160811
  15. CODEINE PHOSPHATE, GUAIFENESIN [Concomitant]
     Active Substance: CODEINE PHOSPHATE\GUAIFENESIN
     Route: 065
     Dates: start: 20161020, end: 20161020
  16. MAGNESIUM SULFATE. [Concomitant]
     Active Substance: MAGNESIUM SULFATE
     Indication: VITAMIN SUPPLEMENTATION
     Route: 065
     Dates: start: 20161024, end: 20161024
  17. ALBUMIN HUMAN [Concomitant]
     Active Substance: ALBUMIN HUMAN
     Indication: FLUID REPLACEMENT
     Route: 065
     Dates: start: 20161130, end: 20161201
  18. BISACODYL. [Concomitant]
     Active Substance: BISACODYL
     Indication: CONSTIPATION
     Route: 065
     Dates: start: 20161018, end: 20161025
  19. BISACODYL. [Concomitant]
     Active Substance: BISACODYL
     Route: 065
     Dates: start: 20161130, end: 20161201
  20. BISACODYL. [Concomitant]
     Active Substance: BISACODYL
     Route: 065
     Dates: start: 20161130, end: 20161130
  21. ABRAXANE [Suspect]
     Active Substance: PACLITAXEL
     Indication: BREAST CANCER METASTATIC
     Dosage: 100MG/M2
     Route: 041
     Dates: start: 20160811
  22. DOCUSATE SODIUM. [Concomitant]
     Active Substance: DOCUSATE SODIUM
     Indication: CONSTIPATION
     Route: 065
     Dates: start: 20161018, end: 20161025
  23. DOCUSATE SODIUM. [Concomitant]
     Active Substance: DOCUSATE SODIUM
     Route: 065
     Dates: start: 20161025
  24. ACETAMINOPHEN. [Concomitant]
     Active Substance: ACETAMINOPHEN
     Indication: PAIN
  25. MUPIROCIN. [Concomitant]
     Active Substance: MUPIROCIN
     Indication: BACTERIAL INFECTION
     Route: 065
     Dates: start: 20161019, end: 20161025
  26. ENOXAPARIN SODIUM. [Concomitant]
     Active Substance: ENOXAPARIN SODIUM
     Indication: DEEP VEIN THROMBOSIS
     Route: 065
     Dates: start: 20161021, end: 20161025
  27. CODEINE PHOSPHATE, GUAIFENESIN [Concomitant]
     Active Substance: CODEINE PHOSPHATE\GUAIFENESIN
     Route: 065
     Dates: start: 20161129, end: 20161201
  28. LORAZEPAM. [Concomitant]
     Active Substance: LORAZEPAM
     Route: 065
     Dates: start: 20161129, end: 20161130
  29. ALBUMIN HUMAN [Concomitant]
     Active Substance: ALBUMIN HUMAN
     Route: 065
     Dates: start: 20161130, end: 20161130
  30. MPDL3280A (ATEZOLIZUMAB) [Suspect]
     Active Substance: ATEZOLIZUMAB
     Dosage: 840 MILLIGRAM
     Route: 041
     Dates: start: 20161115
  31. NAPROXEN SODIUM. [Concomitant]
     Active Substance: NAPROXEN SODIUM
     Indication: BREAST PAIN
  32. LEVOFLOXACIN. [Concomitant]
     Active Substance: LEVOFLOXACIN
     Indication: PNEUMONIA
     Route: 065
     Dates: start: 20161019, end: 20161022
  33. ONDANSETRON [Concomitant]
     Active Substance: ONDANSETRON
     Indication: NAUSEA
     Route: 065
     Dates: start: 20161018, end: 20161025
  34. POTASSIUM CHLORIDE. [Concomitant]
     Active Substance: POTASSIUM CHLORIDE
     Indication: CONSTIPATION
     Route: 065
     Dates: start: 20161019, end: 20161019
  35. POTASSIUM CHLORIDE. [Concomitant]
     Active Substance: POTASSIUM CHLORIDE
     Route: 065
     Dates: start: 20161024, end: 20161024
  36. CODEINE PHOSPHATE, GUAIFENESIN [Concomitant]
     Active Substance: CODEINE PHOSPHATE\GUAIFENESIN
     Route: 065
     Dates: start: 20161025, end: 20161025
  37. WHEY PROTEIN ISOLATE [Concomitant]
     Indication: ENTERAL NUTRITION
     Route: 065
  38. ACETAMINOPHEN. [Concomitant]
     Active Substance: ACETAMINOPHEN
     Indication: PYREXIA
     Route: 065
     Dates: start: 20161018, end: 20161020
  39. DIPHENHYDRAMINE HYDROCHLORIDE. [Concomitant]
     Active Substance: DIPHENHYDRAMINE HYDROCHLORIDE
     Indication: PREMEDICATION
     Route: 065
     Dates: start: 20161020, end: 20161020
  40. PARACETAMOL [Concomitant]
     Active Substance: ACETAMINOPHEN
     Indication: PYREXIA
     Route: 065
     Dates: start: 20161018, end: 20161020
  41. PARACETAMOL [Concomitant]
     Active Substance: ACETAMINOPHEN
     Route: 065
     Dates: start: 20161022, end: 20161025
  42. PARACETAMOL [Concomitant]
     Active Substance: ACETAMINOPHEN
     Route: 065
     Dates: start: 20161129, end: 20161130
  43. MAGNESIUM OXIDE. [Concomitant]
     Active Substance: MAGNESIUM OXIDE
     Indication: LAXATIVE SUPPORTIVE CARE
     Route: 065
     Dates: start: 20161024, end: 20161024
  44. LORAZEPAM. [Concomitant]
     Active Substance: LORAZEPAM
     Indication: ANXIETY
     Route: 065
     Dates: start: 20161129, end: 20161201
  45. IPRATROMIUM BROMIDE [Concomitant]
     Indication: WHEEZING
     Route: 065
  46. ABRAXANE [Suspect]
     Active Substance: PACLITAXEL
     Dosage: 100MG/M2
     Route: 041
     Dates: start: 20161115
  47. MPDL3280A (ATEZOLIZUMAB) [Suspect]
     Active Substance: ATEZOLIZUMAB
     Indication: BREAST CANCER METASTATIC
     Route: 041
     Dates: start: 20160811
  48. MPDL3280A (ATEZOLIZUMAB) [Suspect]
     Active Substance: ATEZOLIZUMAB
     Route: 041
     Dates: start: 20161010
  49. PANTOPRAZOLE SODIUM. [Concomitant]
     Active Substance: PANTOPRAZOLE SODIUM
     Indication: CONSTIPATION
     Route: 065
     Dates: start: 20161025
  50. CEFEPIME HYDROCHLORIDE. [Concomitant]
     Active Substance: CEFEPIME HYDROCHLORIDE
     Indication: PNEUMONIA
     Route: 065
     Dates: start: 20161018, end: 20161022
  51. POTASSIUM CHLORIDE. [Concomitant]
     Active Substance: POTASSIUM CHLORIDE
     Route: 065
     Dates: start: 20161020, end: 20161020
  52. CODEINE PHOSPHATE, GUAIFENESIN [Concomitant]
     Active Substance: CODEINE PHOSPHATE\GUAIFENESIN
     Indication: COUGH
     Route: 065
     Dates: start: 20161024, end: 20161025

REACTIONS (6)
  - Dyspnoea [Recovered/Resolved with Sequelae]
  - Tachycardia [Recovered/Resolved with Sequelae]
  - Dyspnoea [Recovered/Resolved with Sequelae]
  - Neutropenia [Recovered/Resolved with Sequelae]
  - Abdominal distension [Recovered/Resolved with Sequelae]
  - Pancytopenia [Recovered/Resolved]

NARRATIVE: CASE EVENT DATE: 20161018
